FAERS Safety Report 5379130-6 (Version None)
Quarter: 2007Q3

REPORT INFORMATION
  Report Type: 
  Country: None (occurrence: None)
  Receive Date: 20070705
  Receipt Date: 20070629
  Transmission Date: 20080115
  Serious: Yes (Other)
  Sender: FDA-Public Use
  Company Number: GB-BRISTOL-MYERS SQUIBB COMPANY-13830823

PATIENT

DRUGS (2)
  1. TRIAMCINOLONE ACETONIDE [Suspect]
     Route: 031
  2. WARFARIN SODIUM [Suspect]

REACTIONS (3)
  - CATARACT [None]
  - CONJUNCTIVAL HAEMORRHAGE [None]
  - INTRAOCULAR PRESSURE INCREASED [None]
